FAERS Safety Report 6765783-4 (Version None)
Quarter: 2010Q2

REPORT INFORMATION
  Report Type: 
  Country: None (occurrence: None)
  Receive Date: 20100611
  Receipt Date: 20100603
  Transmission Date: 20101027
  Serious: Yes (Other)
  Sender: FDA-Public Use
  Company Number: JP-ROCHE-704599

PATIENT
  Age: 83 Year
  Sex: Female
  Weight: 54 kg

DRUGS (4)
  1. TAMIFLU [Suspect]
     Route: 048
     Dates: start: 20090127, end: 20090127
  2. SELBEX [Concomitant]
     Route: 048
     Dates: start: 20100127, end: 20100127
  3. ZADITEN [Concomitant]
     Dosage: ROUTE: NASAL
     Route: 050
     Dates: start: 20100127, end: 20100127
  4. SOLDEM [Concomitant]
     Route: 041
     Dates: start: 20100127, end: 20100127

REACTIONS (4)
  - DIZZINESS [None]
  - DYSPNOEA [None]
  - MEMORY IMPAIRMENT [None]
  - NAUSEA [None]
